FAERS Safety Report 7441623-5 (Version None)
Quarter: 2011Q2

REPORT INFORMATION
  Report Type: 
  Country: None (occurrence: None)
  Receive Date: 20110428
  Receipt Date: 20110426
  Transmission Date: 20111010
  Serious: Yes (Life-Threatening)
  Sender: FDA-Public Use
  Company Number: FR-SANOFI-AVENTIS-2011SA017471

PATIENT
  Age: 36 Year
  Sex: Female

DRUGS (22)
  1. ROCEPHIN [Concomitant]
     Dates: start: 20110210, end: 20110218
  2. ESOMEPRAZOLE [Suspect]
     Route: 042
     Dates: start: 20110210, end: 20110224
  3. PROPOFOL [Suspect]
     Indication: PAIN
     Route: 042
     Dates: start: 20110210
  4. METHYLPREDNISOLONE HEMISUCCINATE [Concomitant]
     Route: 065
     Dates: start: 20110211, end: 20110218
  5. FENTANYL [Concomitant]
     Indication: INDUCTION OF ANAESTHESIA
     Route: 065
     Dates: start: 20110210
  6. DEXAMETHASONE [Concomitant]
     Indication: INDUCTION OF ANAESTHESIA
     Route: 051
     Dates: start: 20110210
  7. KETAMINE HCL [Concomitant]
     Indication: INDUCTION OF ANAESTHESIA
     Route: 051
     Dates: start: 20110210
  8. ZYVOX [Concomitant]
     Dates: start: 20110222, end: 20110224
  9. LOVENOX [Suspect]
     Indication: THROMBOSIS PROPHYLAXIS
     Route: 058
     Dates: start: 20110210, end: 20110223
  10. SOLU-MEDROL [Concomitant]
     Route: 040
     Dates: start: 20110210, end: 20110211
  11. HYPNOVEL [Concomitant]
     Route: 051
     Dates: start: 20110210
  12. ROVAMYCINE [Concomitant]
     Dates: start: 20110210, end: 20110218
  13. IMIPENEM AND CILASTATIN SODIUM [Concomitant]
     Dates: start: 20110222, end: 20110302
  14. THIOPENTAL SODIUM [Concomitant]
     Indication: INDUCTION OF ANAESTHESIA
     Dates: start: 20110210
  15. SOLU-MEDROL [Concomitant]
     Dates: start: 20110224
  16. SUCCINYLCHOLINE CHLORIDE [Suspect]
     Indication: INDUCTION OF ANAESTHESIA
     Route: 042
     Dates: start: 20110210, end: 20110210
  17. TRACRIUM [Suspect]
     Route: 042
     Dates: start: 20110210
  18. TRACRIUM [Suspect]
     Route: 042
     Dates: end: 20110224
  19. PROPOFOL [Suspect]
     Route: 042
     Dates: start: 20110218, end: 20110220
  20. SUFENTA PRESERVATIVE FREE [Concomitant]
     Dates: start: 20110210
  21. TIBERAL [Concomitant]
     Dates: start: 20110211, end: 20110218
  22. AMIKLIN [Concomitant]
     Dates: start: 20110222, end: 20110223

REACTIONS (6)
  - DRUG RASH WITH EOSINOPHILIA AND SYSTEMIC SYMPTOMS [None]
  - RHABDOMYOLYSIS [None]
  - BRONCHOSPASM [None]
  - RENAL FAILURE [None]
  - HEPATIC ENZYME INCREASED [None]
  - RASH VESICULAR [None]
